FAERS Safety Report 13813662 (Version 4)
Quarter: 2017Q4

REPORT INFORMATION
  Report Type: Report from Study
  Country: None (occurrence: GR)
  Receive Date: 20170731
  Receipt Date: 20171206
  Transmission Date: 20180320
  Serious: Yes (Hospitalization, Other)
  Sender: FDA-Public Use
  Company Number: GR-ABBVIE-17P-066-2051383-00

PATIENT
  Age: 57 Year
  Sex: Male
  Weight: 87 kg

DRUGS (6)
  1. QUETIAPINE. [Concomitant]
     Active Substance: QUETIAPINE
     Indication: DEPRESSION
     Route: 048
  2. DUODOPA [Suspect]
     Active Substance: CARBIDOPA\LEVODOPA
     Indication: PARKINSON^S DISEASE
     Dosage: MORNING DOSE: 13.0ML; CONTINUOUS RATE: 3.8ML/H; EXTRA DOSE: 1.8ML (0 TIMES PER DAY)
     Route: 050
     Dates: start: 20150928
  3. CLONOTRIL [Concomitant]
     Active Substance: CLONAZEPAM
     Indication: PRODUCT USED FOR UNKNOWN INDICATION
     Route: 048
  4. DUODOPA [Suspect]
     Active Substance: CARBIDOPA\LEVODOPA
     Dosage: MORNING DOSE: 13.0ML; CONTINUOUS RATE: 3.8ML/H; EXTRA DOSE: 1.8ML (0 TIMES PER DAY)
     Route: 050
  5. DUODOPA [Suspect]
     Active Substance: CARBIDOPA\LEVODOPA
     Route: 050
  6. MEDOPEXOL [Concomitant]
     Indication: PARKINSON^S DISEASE
     Route: 048

REACTIONS (15)
  - Arthritis [Recovering/Resolving]
  - C-reactive protein increased [Unknown]
  - Asthenia [Not Recovered/Not Resolved]
  - Pulmonary oedema [Recovered/Resolved]
  - Osteosynthesis [Recovered/Resolved]
  - Gastrointestinal infection [Recovered/Resolved]
  - Haematochezia [Not Recovered/Not Resolved]
  - Haematocrit decreased [Not Recovered/Not Resolved]
  - Cough [Recovering/Resolving]
  - Diarrhoea [Not Recovered/Not Resolved]
  - Weight decreased [Not Recovered/Not Resolved]
  - Staphylococcal infection [Recovering/Resolving]
  - Muscular weakness [Not Recovered/Not Resolved]
  - Pyrexia [Recovered/Resolved]
  - Cardiac arrest [Recovered/Resolved]

NARRATIVE: CASE EVENT DATE: 201707
